APPROVED DRUG PRODUCT: POTASSIUM CHLORIDE 20MEQ IN DEXTROSE 5% IN PLASTIC CONTAINER
Active Ingredient: DEXTROSE; POTASSIUM CHLORIDE
Strength: 5GM/100ML;149MG/100ML
Dosage Form/Route: INJECTABLE;INJECTION
Application: N018371 | Product #001
Applicant: OTSUKA ICU MEDICAL LLC
Approved: Approved Prior to Jan 1, 1982 | RLD: No | RS: No | Type: RX